FAERS Safety Report 17146648 (Version 3)
Quarter: 2020Q2

REPORT INFORMATION
  Report Type: Report from Study
  Country: None (occurrence: US)
  Receive Date: 20191212
  Receipt Date: 20200624
  Transmission Date: 20200713
  Serious: Yes (Hospitalization)
  Sender: FDA-Public Use
  Company Number: US-ABBVIE-19K-163-2774707-00

PATIENT
  Sex: Female
  Weight: 99.88 kg

DRUGS (1)
  1. HUMIRA [Suspect]
     Active Substance: ADALIMUMAB
     Indication: CROHN^S DISEASE
     Dosage: CITRATE FREE
     Route: 058
     Dates: start: 20190419

REACTIONS (5)
  - Small intestinal obstruction [Recovered/Resolved]
  - Tuberculin test positive [Unknown]
  - Abdominal hernia obstructive [Unknown]
  - Crohn^s disease [Unknown]
  - Abdominal hernia obstructive [Recovered/Resolved]

NARRATIVE: CASE EVENT DATE: 2019
